FAERS Safety Report 10706890 (Version 1)
Quarter: 2015Q1

REPORT INFORMATION
  Report Type: Spontaneous
  Country: US (occurrence: None)
  Receive Date: 20150112
  Receipt Date: 20150112
  Transmission Date: 20150721
  Serious: No
  Sender: FDA-Public Use
  Company Number: None

PATIENT
  Age: 85 Year
  Sex: Male

DRUGS (1)
  1. XTANDI [Suspect]
     Active Substance: ENZALUTAMIDE
     Indication: PROSTATE CANCER
     Dosage: 4 CAPS QD ORAL
     Route: 048

REACTIONS (4)
  - Spinal pain [None]
  - Diarrhoea [None]
  - Frequent bowel movements [None]
  - Condition aggravated [None]

NARRATIVE: CASE EVENT DATE: 20140924
